FAERS Safety Report 10171326 (Version 2)
Quarter: 2014Q2

REPORT INFORMATION
  Report Type: Spontaneous
  Country: US (occurrence: US)
  Receive Date: 20140514
  Receipt Date: 20140616
  Transmission Date: 20141212
  Serious: Yes (Other)
  Sender: FDA-Public Use
  Company Number: US-PFIZER INC-2014131262

PATIENT
  Sex: Male

DRUGS (3)
  1. SKELAXIN [Suspect]
     Dosage: UNK
  2. CELEBREX [Suspect]
     Dosage: UNK
  3. VIAGRA [Suspect]
     Dosage: UNK

REACTIONS (2)
  - Spinal fracture [Unknown]
  - Post concussion syndrome [Unknown]
